FAERS Safety Report 7690890-1 (Version None)
Quarter: 2011Q3

REPORT INFORMATION
  Report Type: 
  Country: None (occurrence: None)
  Receive Date: 20110818
  Receipt Date: 20110818
  Transmission Date: 20111222
  Serious: No
  Sender: FDA-Public Use
  Company Number: None

PATIENT
  Age: 64 Year
  Sex: Female
  Weight: 59.874 kg

DRUGS (3)
  1. HERCEPTIN [Concomitant]
     Route: 042
  2. TYKERB [Suspect]
     Dosage: 3
     Route: 048
  3. HERCEPTIN [Concomitant]

REACTIONS (1)
  - CARDIOMYOPATHY [None]
